FAERS Safety Report 8771175 (Version 1)
Quarter: 2012Q4

REPORT INFORMATION
  Report Type: Report from Study
  Country: JP (occurrence: JP)
  Receive Date: 20120905
  Receipt Date: 20120905
  Transmission Date: 20130627
  Serious: Yes (Other)
  Sender: FDA-Public Use
  Company Number: JP-VERTEX PHARMACEUTICAL INC.-AE-2012-010798

PATIENT

DRUGS (13)
  1. VX-950 [Suspect]
     Indication: HEPATITIS C
     Dosage: 1500 mg, qd
     Route: 048
     Dates: start: 20120514, end: 20120806
  2. RIBAVIRIN [Suspect]
     Indication: HEPATITIS C
     Dosage: 400 mg, qd
     Route: 048
     Dates: start: 20120514, end: 20120702
  3. RIBAVIRIN [Suspect]
     Dosage: 200 mg, qd
     Route: 048
     Dates: start: 20120703
  4. PEGINTERFERON ALFA-2B [Suspect]
     Indication: HEPATITIS C
     Dosage: 1.5 ?g/kg, 1x/week
     Route: 058
     Dates: start: 20120514
  5. PEGINTERFERON ALFA-2B [Suspect]
     Dosage: 1.1 ?g/kg, 1x/week
     Route: 058
     Dates: start: 20120529
  6. PEGINTERFERON ALFA-2B [Suspect]
     Dosage: 1.5 ?g/kg, 1x/week
     Route: 058
     Dates: start: 20120626
  7. NOVORAPID [Concomitant]
     Dosage: 15 DF, qd
     Route: 058
  8. SEIBULE [Concomitant]
     Dosage: 100 mg, qd
     Route: 048
     Dates: end: 20120515
  9. SEIBULE [Concomitant]
     Dosage: 100 mg, qd
     Route: 048
  10. LANTUS [Concomitant]
     Dosage: 6 DF, qd
     Route: 058
  11. TSUMURA SHAKUYAKUKANZOTO EXTRACT GRANULES FOR ETHICAL USE [Concomitant]
  12. URSO [Concomitant]
     Route: 048
  13. ALDACTONE A [Concomitant]
     Dosage: 25 mg, qd
     Route: 048
     Dates: start: 20120703

REACTIONS (1)
  - Neutropenia [Recovered/Resolved]
